FAERS Safety Report 22230048 (Version 1)
Quarter: 2023Q2

REPORT INFORMATION
  Report Type: Spontaneous
  Country: US (occurrence: US)
  Receive Date: 20230419
  Receipt Date: 20230419
  Transmission Date: 20230722
  Serious: No
  Sender: FDA-Public Use
  Company Number: US-MYLANLABS-2023M1039597

PATIENT
  Sex: Male

DRUGS (4)
  1. CLOZAPINE [Suspect]
     Active Substance: CLOZAPINE
     Indication: Schizophrenia
     Dosage: UNK
     Route: 048
  2. DEPAKOTE [Concomitant]
     Active Substance: DIVALPROEX SODIUM
     Dosage: 2000 MILLIGRAM, QD (AT NIGHT)
     Route: 065
  3. OLANZAPINE [Concomitant]
     Active Substance: OLANZAPINE
     Dosage: 20 MILLIGRAM, QD (OD)
     Route: 065
  4. COGENTIN [Concomitant]
     Active Substance: BENZTROPINE MESYLATE
     Dosage: 1 MILLIGRAM, BID
     Route: 065

REACTIONS (1)
  - Abnormal behaviour [Unknown]

NARRATIVE: CASE EVENT DATE: 20230331
